FAERS Safety Report 10353745 (Version 1)
Quarter: 2014Q3

REPORT INFORMATION
  Report Type: Spontaneous
  Country: US (occurrence: None)
  Receive Date: 20140729
  Receipt Date: 20140729
  Transmission Date: 20150326
  Serious: Yes (Disabling)
  Sender: FDA-Public Use
  Company Number: None

PATIENT
  Age: 61 Year
  Sex: Male
  Weight: 83.92 kg

DRUGS (1)
  1. LISINOPRIL/HYDROWHATACALLIT. HCTZ THREW IT OUT MILITARY PHARMACY [Suspect]
     Active Substance: HYDROCHLOROTHIAZIDE\LISINOPRIL
     Indication: HYPERTENSION
     Route: 048
     Dates: start: 20140601, end: 20140725

REACTIONS (6)
  - Dysphonia [None]
  - Retching [None]
  - Blood pressure increased [None]
  - Rhinorrhoea [None]
  - Cough [None]
  - Dyspnoea [None]

NARRATIVE: CASE EVENT DATE: 20140725
